FAERS Safety Report 5236984-1 (Version None)
Quarter: 2007Q1

REPORT INFORMATION
  Report Type: 
  Country: None (occurrence: None)
  Receive Date: 20070213
  Receipt Date: 20070201
  Transmission Date: 20070707
  Serious: Yes (Hospitalization)
  Sender: FDA-Public Use
  Company Number: PHHO2007AR02513

PATIENT
  Age: 76 Year
  Sex: Female

DRUGS (1)
  1. ZELMAC / HTF 919A [Suspect]
     Indication: CONSTIPATION
     Dosage: 1 TABLET, BID
     Route: 048
     Dates: start: 20061101, end: 20061101

REACTIONS (4)
  - ABDOMINAL PAIN [None]
  - FATIGUE [None]
  - INSOMNIA [None]
  - WEIGHT DECREASED [None]
